FAERS Safety Report 7967364-3 (Version None)
Quarter: 2011Q4

REPORT INFORMATION
  Report Type: 
  Country: None (occurrence: None)
  Receive Date: 20111209
  Receipt Date: 20111125
  Transmission Date: 20120403
  Serious: Yes (Death)
  Sender: FDA-Public Use
  Company Number: AT-MYLANLABS-2011S1024784

PATIENT
  Age: 80 Year
  Sex: Female

DRUGS (3)
  1. DEXIBUPROFEN [Suspect]
     Route: 065
  2. FUROSEMIDE [Suspect]
     Route: 065
  3. METFORMIN HCL [Suspect]
     Route: 065

REACTIONS (2)
  - RENAL FAILURE ACUTE [None]
  - LACTIC ACIDOSIS [None]
